APPROVED DRUG PRODUCT: HALOPERIDOL
Active Ingredient: HALOPERIDOL LACTATE
Strength: EQ 5MG BASE/ML
Dosage Form/Route: INJECTABLE;INJECTION
Application: A204849 | Product #001
Applicant: EPIC PHARMA LLC
Approved: Sep 6, 2017 | RLD: No | RS: No | Type: DISCN